FAERS Safety Report 5553962-3 (Version None)
Quarter: 2007Q4

REPORT INFORMATION
  Report Type: 
  Country: None (occurrence: None)
  Receive Date: 20071213
  Receipt Date: 20071203
  Transmission Date: 20080405
  Serious: Yes (Death)
  Sender: FDA-Public Use
  Company Number: DE-ELI_LILLY_AND_COMPANY-DE200711000349

PATIENT
  Age: 80 Year
  Sex: Female

DRUGS (22)
  1. FORTEO [Suspect]
     Indication: OSTEOPOROSIS
     Dosage: 20 UG, DAILY (1/D)
     Route: 058
     Dates: start: 20071005
  2. ISCOVER [Concomitant]
     Dosage: 75 MG, DAILY (1/D)
     Dates: start: 20020101
  3. RISPERDAL [Concomitant]
     Dosage: 0.5 MG, UNK
     Dates: start: 20020101
  4. OMEPRAZOLE [Concomitant]
     Dosage: 1 D/F, DAILY (1/D)
  5. OMEPRAZOLE [Concomitant]
     Dosage: 20 MG, 2/D
  6. SOTAHEXAL [Concomitant]
     Dosage: 80 MG, 3/D
  7. ACTONEL [Concomitant]
     Dosage: 35 MG, WEEKLY (1/W)
  8. DEKRISTOL [Concomitant]
     Dosage: UNK, 2/D
  9. CALCIUM [Concomitant]
     Dosage: 1 D/F, DAILY (1/D)
  10. TILIDIN [Concomitant]
     Dosage: UNK, 2/D
  11. HYDROCHLOROTHIAZIDE [Concomitant]
     Dosage: 12.5 MG, DAILY (1/D)
  12. SIMVABETA [Concomitant]
     Dosage: 5 MG, DAILY (1/D)
     Dates: start: 20040101
  13. ATOSIL [Concomitant]
     Dosage: 25 MG, DAILY (1/D)
     Dates: start: 20020101
  14. BROMAZANIL [Concomitant]
     Dosage: 6 MG, AS NEEDED
     Dates: start: 20040101
  15. ALLOPURINOL [Concomitant]
     Dosage: UNK, WEEKLY (1/W)
  16. SISARE [Concomitant]
     Dosage: 0.4 MG, QOD
  17. HEPA BESCH L [Concomitant]
     Dosage: UNK, DAILY (1/D)
  18. BERODUAL [Concomitant]
     Dosage: UNK, 2/D
  19. NITROLINGUAL PUMPSPRAY [Concomitant]
     Dosage: 14.2 MG, AS NEEDED
     Dates: start: 20060101
  20. SERTRALIN [Concomitant]
     Dosage: 100 MG, UNK
     Dates: start: 20070501
  21. FUROSEMIDE [Concomitant]
     Dosage: 40 MG, DAILY (1/D)
     Dates: start: 20070701
  22. PROTELOS [Concomitant]
     Dosage: UNK, DAILY (1/D)
     Dates: start: 20061101

REACTIONS (2)
  - DEEP VEIN THROMBOSIS [None]
  - PULMONARY EMBOLISM [None]
